FAERS Safety Report 8028071-4 (Version None)
Quarter: 2012Q1

REPORT INFORMATION
  Report Type: 
  Country: None (occurrence: None)
  Receive Date: 20120106
  Receipt Date: 20120104
  Transmission Date: 20120608
  Serious: Yes (Congenital Anomaly)
  Sender: FDA-Public Use
  Company Number: HU-ROCHE-1026842

PATIENT

DRUGS (2)
  1. DIAZEPAM [Suspect]
     Indication: EPILEPSY
     Route: 064
  2. VALPROATE SODIUM [Suspect]
     Indication: EPILEPSY

REACTIONS (2)
  - HYPOSPADIAS [None]
  - MATERNAL EXPOSURE TIMING UNSPECIFIED [None]
